FAERS Safety Report 5107053-6 (Version None)
Quarter: 2006Q3

REPORT INFORMATION
  Report Type: 
  Country: None (occurrence: None)
  Receive Date: 20060913
  Receipt Date: 20060904
  Transmission Date: 20061208
  Serious: Yes (Other)
  Sender: FDA-Public Use
  Company Number: GXKR2006GB05467

PATIENT
  Sex: Male

DRUGS (4)
  1. CODEINE PHOSPHATE [Suspect]
  2. ETHANOL (ETHANOL) [Suspect]
  3. ACETAMINOPHEN [Suspect]
  4. SEROXAT ^SMITHKLINE BEECHAM^ (PAROXETINE HYDROCHLORIDE) [Suspect]
     Indication: DEPRESSION
     Dosage: 20 MG, QD
     Dates: start: 20021114

REACTIONS (6)
  - DRUG WITHDRAWAL SYNDROME [None]
  - ILL-DEFINED DISORDER [None]
  - INTENTIONAL OVERDOSE [None]
  - PARTNER STRESS [None]
  - SELF-INJURIOUS IDEATION [None]
  - SUICIDE ATTEMPT [None]
